FAERS Safety Report 9437671 (Version 2)
Quarter: 2013Q4

REPORT INFORMATION
  Report Type: Spontaneous
  Country: US (occurrence: US)
  Receive Date: 20130802
  Receipt Date: 20131107
  Transmission Date: 20140711
  Serious: No
  Sender: FDA-Public Use
  Company Number: US-009507513-1308USA000112

PATIENT
  Age: 52 Year
  Sex: Male

DRUGS (2)
  1. REBETOL [Suspect]
     Dosage: UNK
     Route: 048
     Dates: start: 2010, end: 2010
  2. PEGASYS [Suspect]
     Dosage: UNK
     Dates: start: 2010, end: 2010

REACTIONS (2)
  - Treatment failure [Unknown]
  - Hepatitis C [Recovered/Resolved]
